FAERS Safety Report 7087748-8 (Version None)
Quarter: 2010Q4

REPORT INFORMATION
  Report Type: 
  Country: None (occurrence: None)
  Receive Date: 20101108
  Receipt Date: 20101029
  Transmission Date: 20110411
  Serious: No
  Sender: FDA-Public Use
  Company Number: 2009BI034923

PATIENT
  Sex: Female

DRUGS (1)
  1. TYSABRI [Suspect]
     Indication: MULTIPLE SCLEROSIS
     Route: 042
     Dates: start: 20090317

REACTIONS (11)
  - DIPLOPIA [None]
  - DRUG EFFECT DECREASED [None]
  - DYSPHONIA [None]
  - FATIGUE [None]
  - GAIT DISTURBANCE [None]
  - MACULAR DEGENERATION [None]
  - MEMORY IMPAIRMENT [None]
  - MOBILITY DECREASED [None]
  - MUSCLE TIGHTNESS [None]
  - PAIN [None]
  - VISUAL FIELD DEFECT [None]
